FAERS Safety Report 14158833 (Version 1)
Quarter: 2017Q4

REPORT INFORMATION
  Report Type: Spontaneous
  Country: US (occurrence: US)
  Receive Date: 20171103
  Receipt Date: 20171103
  Transmission Date: 20180321
  Serious: No
  Sender: FDA-Public Use
  Company Number: US-MYLANLABS-2017M1069104

PATIENT
  Sex: Female
  Weight: 50 kg

DRUGS (2)
  1. ECONTRA EZ [Suspect]
     Active Substance: LEVONORGESTREL
     Indication: CONTRACEPTION
     Dosage: 1 DF, PRN (2 PILL IN AUGUST)
     Route: 048
     Dates: start: 201708
  2. ECONTRA EZ [Suspect]
     Active Substance: LEVONORGESTREL
     Dosage: 1 DF, PRN (ONE PILL IN SEP)
     Route: 048
     Dates: start: 201709

REACTIONS (2)
  - Abdominal pain [Not Recovered/Not Resolved]
  - Menstruation delayed [Not Recovered/Not Resolved]

NARRATIVE: CASE EVENT DATE: 2017
